FAERS Safety Report 10982898 (Version 3)
Quarter: 2016Q2

REPORT INFORMATION
  Report Type: Report from Study
  Country: BR (occurrence: BR)
  Receive Date: 20150403
  Receipt Date: 20160525
  Transmission Date: 20160815
  Serious: Yes (Hospitalization, Other)
  Sender: FDA-Public Use
  Company Number: BR-ROCHE-1431031

PATIENT
  Age: 80 Year
  Sex: Female
  Weight: 47.8 kg

DRUGS (9)
  1. ENDOFOLIN [Concomitant]
     Active Substance: FOLIC ACID
     Indication: ANAEMIA
  2. DOMPERIDONE [Concomitant]
     Active Substance: DOMPERIDONE
     Route: 065
  3. FLORATIL [Concomitant]
     Indication: DIARRHOEA
  4. TRAMAL [Concomitant]
     Active Substance: TRAMADOL
  5. TECTA [Concomitant]
     Active Substance: PANTOPRAZOLE MAGNESIUM
     Route: 065
  6. PECTAL [Concomitant]
     Route: 065
  7. ACTEMRA [Suspect]
     Active Substance: TOCILIZUMAB
     Indication: RHEUMATOID ARTHRITIS
     Route: 042
     Dates: start: 20140515
  8. NOVALGIN [Concomitant]
     Active Substance: METAMIZOLE SODIUM
     Indication: HYPERTENSION
  9. NOVALGIN [Concomitant]
     Active Substance: METAMIZOLE SODIUM
     Indication: PAIN

REACTIONS (19)
  - Peripheral swelling [Not Recovered/Not Resolved]
  - Gait disturbance [Not Recovered/Not Resolved]
  - Drug dose omission [Unknown]
  - Pain [Not Recovered/Not Resolved]
  - Arthralgia [Not Recovered/Not Resolved]
  - Rheumatoid arthritis [Not Recovered/Not Resolved]
  - Ill-defined disorder [Not Recovered/Not Resolved]
  - Joint swelling [Unknown]
  - Rhinitis allergic [Unknown]
  - Nausea [Not Recovered/Not Resolved]
  - Joint swelling [Not Recovered/Not Resolved]
  - Bronchitis [Recovering/Resolving]
  - Pelvic fracture [Not Recovered/Not Resolved]
  - Blood cholesterol abnormal [Unknown]
  - Fall [Unknown]
  - Syncope [Unknown]
  - Memory impairment [Not Recovered/Not Resolved]
  - Vomiting [Not Recovered/Not Resolved]
  - Peripheral swelling [Unknown]

NARRATIVE: CASE EVENT DATE: 20140615
